FAERS Safety Report 9974961 (Version 1)
Quarter: 2014Q1

REPORT INFORMATION
  Report Type: Report from Study
  Country: US (occurrence: US)
  Receive Date: 20140306
  Receipt Date: 20140306
  Transmission Date: 20141002
  Serious: No
  Sender: FDA-Public Use
  Company Number: US-ABBVIE-13P-163-1160709-00

PATIENT
  Age: 25 Year
  Sex: Male

DRUGS (6)
  1. HUMIRA [Suspect]
     Indication: CROHN^S DISEASE
     Dates: start: 20130904
  2. AZATHIOPRINE [Concomitant]
     Indication: CROHN^S DISEASE
     Dosage: 2 TABLETS DAILY
  3. DICYCLOMINE [Concomitant]
     Indication: ABDOMINAL PAIN
     Dosage: 2 TABLETS TO START, THEN 1 EVERY 4-6 HOURS
  4. IBUPROFEN [Concomitant]
     Indication: HEADACHE
  5. IBUPROFEN [Concomitant]
     Indication: MYALGIA
  6. FLONASE [Concomitant]
     Indication: HYPERSENSITIVITY
     Dosage: 2 PUFFS DAILY IN EACH NOSTRIL

REACTIONS (3)
  - Injection site inflammation [Not Recovered/Not Resolved]
  - Myalgia [Unknown]
  - Injection site erythema [Not Recovered/Not Resolved]
